FAERS Safety Report 24033817 (Version 2)
Quarter: 2024Q3

REPORT INFORMATION
  Report Type: Spontaneous
  Country: AT (occurrence: AT)
  Receive Date: 20240701
  Receipt Date: 20240723
  Transmission Date: 20241017
  Serious: Yes (Other)
  Sender: AMGEN
  Company Number: AT-AMGEN-AUTSP2024125889

PATIENT

DRUGS (1)
  1. FILGRASTIM [Suspect]
     Active Substance: FILGRASTIM
     Indication: Haematopoietic stem cell mobilisation
     Dosage: UNK
     Route: 065

REACTIONS (19)
  - Haemothorax [Unknown]
  - Autoimmune thyroiditis [Unknown]
  - Hyperthermia malignant [Unknown]
  - Haematological malignancy [Unknown]
  - Hodgkin^s disease [Unknown]
  - Plasma cell myeloma [Unknown]
  - Chronic myeloid leukaemia [Unknown]
  - Chloroma [Unknown]
  - Acute promyelocytic leukaemia [Unknown]
  - Prostate cancer [Unknown]
  - Ovarian cancer [Unknown]
  - Bladder cancer [Unknown]
  - Neoplasm malignant [Unknown]
  - Colitis ulcerative [Unknown]
  - Rheumatoid arthritis [Unknown]
  - Ankylosing spondylitis [Unknown]
  - Autoimmune disorder [Unknown]
  - Thrombophlebitis [Unknown]
  - Hypertension [Unknown]
